FAERS Safety Report 9903265 (Version 3)
Quarter: 2015Q3

REPORT INFORMATION
  Report Type: Spontaneous
  Country: US (occurrence: US)
  Receive Date: 20140217
  Receipt Date: 20150810
  Transmission Date: 20151125
  Serious: No
  Sender: FDA-Public Use
  Company Number: US-GILEAD-2011-0045520

PATIENT
  Age: 48 Year
  Sex: Female

DRUGS (2)
  1. LETAIRIS [Suspect]
     Active Substance: AMBRISENTAN
     Indication: PRODUCT USED FOR UNKNOWN INDICATION
     Dosage: 5 MG, UNK
     Route: 048
     Dates: start: 20111013, end: 20111025
  2. REVATIO [Suspect]
     Active Substance: SILDENAFIL CITRATE

REACTIONS (3)
  - Dyspnoea [Unknown]
  - Dizziness [Unknown]
  - Gait disturbance [Unknown]
